FAERS Safety Report 7298863-8 (Version None)
Quarter: 2011Q1

REPORT INFORMATION
  Report Type: 
  Country: None (occurrence: None)
  Receive Date: 20110208
  Receipt Date: 20110125
  Transmission Date: 20110831
  Serious: Yes (Other)
  Sender: FDA-Public Use
  Company Number: RU-1184649

PATIENT
  Age: 83 Year
  Sex: Male

DRUGS (2)
  1. SYMBICORT [Concomitant]
  2. BETOPTIC [Suspect]
     Dosage: OPHTHALMIC
     Route: 047
     Dates: start: 20050101

REACTIONS (2)
  - ASPHYXIA [None]
  - ASTHMA [None]
